FAERS Safety Report 20899913 (Version 1)
Quarter: 2022Q2

REPORT INFORMATION
  Report Type: Spontaneous
  Country: BR (occurrence: BR)
  Receive Date: 20220601
  Receipt Date: 20220601
  Transmission Date: 20220721
  Serious: Yes (Other)
  Sender: FDA-Public Use
  Company Number: BR-AMGEN-BRASP2022094076

PATIENT
  Age: 10 Year
  Sex: Female

DRUGS (1)
  1. BLINATUMOMAB [Suspect]
     Active Substance: BLINATUMOMAB
     Indication: Acute lymphocytic leukaemia
     Dosage: 15 MICROGRAM/M2, QD
     Route: 065

REACTIONS (3)
  - Acute lymphocytic leukaemia [Unknown]
  - Aplastic anaemia [Unknown]
  - Cytokine release syndrome [Unknown]
